FAERS Safety Report 19056745 (Version 1)
Quarter: 2021Q1

REPORT INFORMATION
  Report Type: Spontaneous
  Country: US (occurrence: US)
  Receive Date: 20210325
  Receipt Date: 20210325
  Transmission Date: 20210420
  Serious: No
  Sender: FDA-Public Use
  Company Number: US-DRREDDYS-USA/USA/21/0132764

PATIENT
  Sex: Male

DRUGS (1)
  1. HABITROL [Suspect]
     Active Substance: NICOTINE
     Indication: TOBACCO USER
     Dosage: 1 PATCH DAILY
     Route: 062

REACTIONS (4)
  - Drug ineffective [Unknown]
  - Treatment noncompliance [Unknown]
  - Product quality issue [Unknown]
  - Incorrect dose administered [Unknown]
